FAERS Safety Report 15839784 (Version 1)
Quarter: 2019Q1

REPORT INFORMATION
  Report Type: Spontaneous
  Country: PL (occurrence: PL)
  Receive Date: 20190117
  Receipt Date: 20190117
  Transmission Date: 20190417
  Serious: Yes (Death, Other)
  Sender: FDA-Public Use
  Company Number: PL-GLAXOSMITHKLINE-PL2019GSK001851

PATIENT
  Age: 47 Year
  Sex: Female

DRUGS (3)
  1. LAMITRIN [Suspect]
     Active Substance: LAMOTRIGINE
     Indication: PRODUCT USED FOR UNKNOWN INDICATION
     Dosage: UNK
  2. GLIBETIC (GLIMEPIRIDE) [Suspect]
     Active Substance: GLIMEPIRIDE
     Indication: COMPLETED SUICIDE
     Dosage: UNK
  3. TABEX (CYTISINE) [Suspect]
     Active Substance: CYTISINE
     Indication: COMPLETED SUICIDE
     Dosage: UNK

REACTIONS (8)
  - Arteriosclerosis [Unknown]
  - Completed suicide [Fatal]
  - Pneumoconiosis [Unknown]
  - Skin haemorrhage [Unknown]
  - Skin abrasion [Unknown]
  - Toxicity to various agents [Fatal]
  - Rib fracture [Unknown]
  - Conjunctival haemorrhage [Unknown]
